FAERS Safety Report 16123671 (Version 1)
Quarter: 2019Q1

REPORT INFORMATION
  Report Type: Spontaneous
  Country: US (occurrence: US)
  Receive Date: 20190327
  Receipt Date: 20190327
  Transmission Date: 20190418
  Serious: No
  Sender: FDA-Public Use
  Company Number: US-PFIZER INC-2019124619

PATIENT
  Age: 55 Year
  Sex: Male

DRUGS (2)
  1. TACROLIMUS. [Suspect]
     Active Substance: TACROLIMUS
     Dosage: UNK
  2. DAPSONE. [Suspect]
     Active Substance: DAPSONE
     Dosage: UNK

REACTIONS (1)
  - Drug hypersensitivity [Unknown]
